FAERS Safety Report 5723961-7 (Version None)
Quarter: 2008Q2

REPORT INFORMATION
  Report Type: 
  Country: None (occurrence: None)
  Receive Date: 20080430
  Receipt Date: 20080428
  Transmission Date: 20081010
  Serious: Yes (Hospitalization, Disabling)
  Sender: FDA-Public Use
  Company Number: US-KINGPHARMUSA00001-K200800489

PATIENT

DRUGS (10)
  1. ALTACE [Suspect]
     Indication: HYPERTENSION
     Dosage: 5 MG, QD
     Route: 048
     Dates: start: 20070101, end: 20070122
  2. LASIX [Suspect]
     Dosage: 40 MG, QD
     Route: 048
     Dates: start: 20070112, end: 20070122
  3. LASIX [Suspect]
     Dosage: 80 MG, QD
     Route: 048
     Dates: start: 20070112, end: 20070122
  4. RISPERDAL [Suspect]
     Dosage: 2 MG, QD
     Route: 048
     Dates: start: 20061229, end: 20070122
  5. CONCOR                             /00802602/ [Suspect]
     Dosage: 5 MG, QD
     Route: 048
     Dates: start: 20070115, end: 20070117
  6. PANTOPRAZOLE SODIUM [Concomitant]
     Dosage: 40 MG, UNK
     Route: 048
     Dates: start: 20070101, end: 20070122
  7. ASPIRIN [Concomitant]
     Dosage: 100 MG, UNK
     Route: 048
     Dates: start: 20070101, end: 20070122
  8. ACC                                /00082801/ [Concomitant]
     Dosage: 3X1 GRANULES
     Route: 048
     Dates: start: 20070110, end: 20070116
  9. MEMANTINE HCL [Concomitant]
     Dosage: 5 MG, UNK
     Route: 048
     Dates: start: 20070110, end: 20070116
  10. MEMANTINE HCL [Concomitant]
     Dosage: 10 MG, UNK
     Route: 048
     Dates: start: 20070117, end: 20070122

REACTIONS (7)
  - ATRIAL FIBRILLATION [None]
  - CARDIAC DISORDER [None]
  - CEREBRAL INFARCTION [None]
  - DISABILITY [None]
  - DRUG INTERACTION [None]
  - EMBOLISM [None]
  - HEMIPARESIS [None]
